FAERS Safety Report 10191101 (Version 1)
Quarter: 2014Q2

REPORT INFORMATION
  Report Type: Spontaneous
  Country: GB (occurrence: GB)
  Receive Date: 20140523
  Receipt Date: 20140523
  Transmission Date: 20141212
  Serious: Yes (Other)
  Sender: FDA-Public Use
  Company Number: GB-MYLANLABS-2014S1011007

PATIENT
  Age: 76 Year
  Sex: Female

DRUGS (1)
  1. AMLODIPINE BESILATE [Suspect]

REACTIONS (1)
  - Lower respiratory tract infection [Unknown]
